FAERS Safety Report 7820813-3 (Version None)
Quarter: 2011Q4

REPORT INFORMATION
  Report Type: 
  Country: None (occurrence: None)
  Receive Date: 20111013
  Receipt Date: 20111011
  Transmission Date: 20120403
  Serious: Yes (Other)
  Sender: FDA-Public Use
  Company Number: 2011SP045724

PATIENT
  Age: 37 Year
  Sex: Female

DRUGS (1)
  1. PREGNYL [Suspect]
     Indication: OVULATION INDUCTION
     Dosage: 10000 IU;ONCE;SC
     Route: 058
     Dates: start: 20110919

REACTIONS (3)
  - RASH MACULO-PAPULAR [None]
  - PHOTOSENSITIVITY REACTION [None]
  - RASH PRURITIC [None]
